FAERS Safety Report 18194784 (Version 1)
Quarter: 2020Q3

REPORT INFORMATION
  Report Type: Spontaneous
  Country: US (occurrence: US)
  Receive Date: 20200825
  Receipt Date: 20200825
  Transmission Date: 20201103
  Serious: No
  Sender: FDA-Public Use
  Company Number: US-ASTRAZENECA-2020SF04755

PATIENT
  Sex: Female

DRUGS (2)
  1. QUETIAPINE. [Suspect]
     Active Substance: QUETIAPINE
     Route: 048
  2. QUETIAPINE. [Suspect]
     Active Substance: QUETIAPINE
     Route: 048

REACTIONS (7)
  - Tardive dyskinesia [Unknown]
  - Dry mouth [Unknown]
  - Dyskinesia [Unknown]
  - Tongue disorder [Unknown]
  - Tongue movement disturbance [Unknown]
  - Mental impairment [Unknown]
  - Dysphonia [Unknown]
